FAERS Safety Report 18045512 (Version 1)
Quarter: 2020Q3

REPORT INFORMATION
  Report Type: Spontaneous
  Country: BG (occurrence: BG)
  Receive Date: 20200720
  Receipt Date: 20200720
  Transmission Date: 20201103
  Serious: Yes (Hospitalization)
  Sender: FDA-Public Use
  Company Number: BG-PFM-2020-16289

PATIENT
  Age: 3 Month
  Sex: Female
  Weight: 5 kg

DRUGS (2)
  1. VIGANTOL [Concomitant]
     Indication: PRODUCT USED FOR UNKNOWN INDICATION
     Dosage: 2 DROPS, QD (1/DAY)
     Route: 048
  2. HEMANGIOL [Suspect]
     Active Substance: PROPRANOLOL HYDROCHLORIDE
     Indication: INFANTILE HAEMANGIOMA
     Dosage: 2.5 MG, BID (2/DAY)
     Route: 048
     Dates: start: 20200629, end: 20200705

REACTIONS (6)
  - Erythema [Recovered/Resolved]
  - Crying [Recovered/Resolved]
  - Irregular breathing [Recovered/Resolved]
  - Restlessness [Recovered/Resolved]
  - Decreased activity [Recovered/Resolved]
  - Intentional product misuse [Unknown]

NARRATIVE: CASE EVENT DATE: 20200706
